FAERS Safety Report 9985007 (Version 3)
Quarter: 2014Q2

REPORT INFORMATION
  Report Type: Spontaneous
  Country: US (occurrence: US)
  Receive Date: 20140307
  Receipt Date: 20140417
  Transmission Date: 20141212
  Serious: Yes (Hospitalization, Other)
  Sender: FDA-Public Use
  Company Number: US-UCBSA-103577

PATIENT
  Age: 61 Year
  Sex: Female
  Weight: 78.9 kg

DRUGS (6)
  1. CIMZIA [Suspect]
     Indication: PSORIATIC ARTHROPATHY
     Dosage: NO OF DOSES: 8
     Route: 058
     Dates: end: 20131204
  2. VOLTAREN [Concomitant]
     Indication: UVEITIS
     Dosage: FREQUENCY: 2 TIMES UNSPECIFIED
  3. SIMVASTATIN [Concomitant]
     Indication: BLOOD CHOLESTEROL INCREASED
  4. COSOPT [Concomitant]
     Indication: UVEITIS
     Dosage: DOSE: 1, FREQUENCY: 2 TIMES UNSPECIFIED
  5. TRAVATAN [Concomitant]
     Indication: UVEITIS
     Dosage: DOSE: 1, FREQUENCY: 1 TIMES UNSPECIFIED
  6. METHOTREXATE [Concomitant]

REACTIONS (6)
  - Upper limb fracture [Recovering/Resolving]
  - Accident [Unknown]
  - Fall [Recovering/Resolving]
  - Pain [Recovered/Resolved]
  - Tooth fracture [Recovering/Resolving]
  - Thrombosis [Not Recovered/Not Resolved]
